FAERS Safety Report 15843121 (Version 1)
Quarter: 2019Q1

REPORT INFORMATION
  Report Type: Spontaneous
  Country: US (occurrence: US)
  Receive Date: 20190118
  Receipt Date: 20190118
  Transmission Date: 20190417
  Serious: Yes (Disabling)
  Sender: FDA-Public Use
  Company Number: None

PATIENT
  Age: 44 Year
  Sex: Male
  Weight: 74.25 kg

DRUGS (2)
  1. AIMOVIG [Concomitant]
     Active Substance: ERENUMAB-AOOE
  2. OCEAN SALINE NASAL SPRAY [Suspect]
     Active Substance: SODIUM CHLORIDE
     Indication: SINUS DISORDER
     Dosage: ?          QUANTITY:2 SPRAY(S);OTHER ROUTE:SPRAY INTO NOSE?
     Dates: start: 20171201, end: 20180131

REACTIONS (4)
  - Sinusitis [None]
  - Sinus pain [None]
  - Facial pain [None]
  - Headache [None]

NARRATIVE: CASE EVENT DATE: 20171205
